FAERS Safety Report 5007438-2 (Version None)
Quarter: 2006Q2

REPORT INFORMATION
  Report Type: 
  Country: None (occurrence: None)
  Receive Date: 20060519
  Receipt Date: 20060519
  Transmission Date: 20061013
  Serious: Yes (Hospitalization)
  Sender: FDA-Public Use
  Company Number: None

PATIENT
  Age: 32 Year
  Sex: Female
  Weight: 58.9676 kg

DRUGS (3)
  1. MIDAZOLAM     10MG/2ML [Suspect]
     Indication: ANAESTHESIA
     Dosage: 8MG IN TITRATION    TITRATION X 1    IV
     Route: 042
     Dates: start: 20060421, end: 20060421
  2. MIDAZOLAM     10MG/2ML [Suspect]
     Indication: SEDATION
     Dosage: 8MG IN TITRATION    TITRATION X 1    IV
     Route: 042
     Dates: start: 20060421, end: 20060421
  3. DEMEROL [Concomitant]

REACTIONS (5)
  - DEPRESSED LEVEL OF CONSCIOUSNESS [None]
  - DYSKINESIA [None]
  - PARADOXICAL DRUG REACTION [None]
  - TEARFULNESS [None]
  - TREMOR [None]
